FAERS Safety Report 24729371 (Version 1)
Quarter: 2024Q4

REPORT INFORMATION
  Report Type: Spontaneous
  Country: FR (occurrence: FR)
  Receive Date: 20241213
  Receipt Date: 20241213
  Transmission Date: 20250115
  Serious: Yes (Death, Other)
  Sender: AUROBINDO
  Company Number: FR-AFSSAPS-TS2024001395

PATIENT
  Age: 13 Year
  Sex: Male

DRUGS (1)
  1. DICLOFENAC [Suspect]
     Active Substance: DICLOFENAC
     Indication: Injury
     Dosage: UNK
     Route: 048
     Dates: start: 20241024

REACTIONS (2)
  - Respiratory distress [Fatal]
  - Lung disorder [Fatal]

NARRATIVE: CASE EVENT DATE: 20241028
